FAERS Safety Report 9355660 (Version 1)
Quarter: 2013Q2

REPORT INFORMATION
  Report Type: Spontaneous
  Country: US (occurrence: None)
  Receive Date: 20130618
  Receipt Date: 20130618
  Transmission Date: 20140414
  Serious: No
  Sender: FDA-Public Use
  Company Number: None

PATIENT
  Age: 53 Year
  Sex: Male
  Weight: 83.46 kg

DRUGS (5)
  1. MONTELUKAST [Suspect]
     Indication: ASTHMA
     Route: 048
     Dates: start: 20121101, end: 20130305
  2. ALLEGRA-D [Concomitant]
  3. PROAIR HFA [Concomitant]
  4. ADVIL [Concomitant]
  5. VITAMIN D [Concomitant]

REACTIONS (2)
  - Headache [None]
  - Product substitution issue [None]
